FAERS Safety Report 5845783-9 (Version None)
Quarter: 2008Q3

REPORT INFORMATION
  Report Type: 
  Country: None (occurrence: None)
  Receive Date: 20080814
  Receipt Date: 20080808
  Transmission Date: 20090109
  Serious: No
  Sender: FDA-Public Use
  Company Number: US-BOEHRINGER INGELHEIM GMBH, GERMANY-2008-BP-12518BP

PATIENT
  Age: 79 Year
  Sex: Female

DRUGS (4)
  1. MICARDIS [Suspect]
     Indication: HYPERTENSION
     Route: 048
     Dates: start: 20080708
  2. NORVASC [Suspect]
     Indication: HYPERTENSION
     Dates: start: 20080708
  3. IRON [Concomitant]
     Indication: ANAEMIA
  4. LOPRESSOR [Concomitant]
     Indication: HYPERTENSION

REACTIONS (1)
  - HAEMATOCRIT DECREASED [None]
